FAERS Safety Report 5457021-X (Version None)
Quarter: 2007Q3

REPORT INFORMATION
  Report Type: 
  Country: None (occurrence: None)
  Receive Date: 20070918
  Receipt Date: 20070716
  Transmission Date: 20080115
  Serious: Yes (Other)
  Sender: FDA-Public Use
  Company Number: US-ASTRAZENECA-2006UW27574

PATIENT
  Age: 44 Year
  Sex: Female

DRUGS (3)
  1. SEROQUEL [Suspect]
     Indication: BIPOLAR DISORDER
     Route: 048
  2. ZYPREXA [Concomitant]
     Indication: BIPOLAR DISORDER
     Dates: start: 20030917, end: 20051203
  3. RISPERDAL [Concomitant]
     Indication: BIPOLAR DISORDER
     Dosage: 2.5-5 MG
     Dates: start: 20010627, end: 20011123

REACTIONS (1)
  - TARDIVE DYSKINESIA [None]
